FAERS Safety Report 5857281-7 (Version None)
Quarter: 2008Q3

REPORT INFORMATION
  Report Type: 
  Country: None (occurrence: None)
  Receive Date: 20080822
  Receipt Date: 20080711
  Transmission Date: 20090109
  Serious: No
  Sender: FDA-Public Use
  Company Number: ADE# 08-107

PATIENT
  Age: 74 Year
  Sex: Female
  Weight: 79.3795 kg

DRUGS (3)
  1. TRAMADOL HYDROCHLORIDE AND ACETAMINOPHEN [Suspect]
     Indication: BACK PAIN
     Dosage: 1 TABLET EVERY 6 HOUSR
     Dates: start: 20080605, end: 20080711
  2. TRAMADOL HYDROCHLORIDE AND ACETAMINOPHEN [Suspect]
     Indication: MUSCULOSKELETAL PAIN
     Dosage: 1 TABLET EVERY 6 HOUSR
     Dates: start: 20080605, end: 20080711
  3. TRAMADOL HYDROCHLORIDE AND ACETAMINOPHEN [Suspect]
     Indication: NECK PAIN
     Dosage: 1 TABLET EVERY 6 HOUSR
     Dates: start: 20080605, end: 20080711

REACTIONS (2)
  - DYSPNOEA [None]
  - PALPITATIONS [None]
